FAERS Safety Report 18489598 (Version 3)
Quarter: 2020Q4

REPORT INFORMATION
  Report Type: Spontaneous
  Country: US (occurrence: US)
  Receive Date: 20201111
  Receipt Date: 20201208
  Transmission Date: 20210114
  Serious: Yes (Other)
  Sender: FDA-Public Use
  Company Number: US-CELGENEUS-USA-20201101290

PATIENT
  Age: 68 Year
  Sex: Male
  Weight: 78.09 kg

DRUGS (6)
  1. REVLIMID [Suspect]
     Active Substance: LENALIDOMIDE
     Indication: PLASMA CELL MYELOMA
     Dosage: 10 - 5 MG
     Route: 048
     Dates: start: 201606
  2. CYCLOBENZAPRINE. [Concomitant]
     Active Substance: CYCLOBENZAPRINE
     Indication: INFECTION
     Route: 065
     Dates: start: 2020
  3. REVLIMID [Suspect]
     Active Substance: LENALIDOMIDE
     Dosage: 5 - 10 MG
     Route: 048
     Dates: start: 201702
  4. REVLIMID [Suspect]
     Active Substance: LENALIDOMIDE
     Indication: NEOPLASM MALIGNANT
     Dosage: 25 MILLIGRAM
     Route: 048
     Dates: start: 201508
  5. REVLIMID [Suspect]
     Active Substance: LENALIDOMIDE
     Dosage: 10 MILLIGRAM
     Route: 048
     Dates: start: 20201104
  6. VACICLOVIR [Concomitant]
     Indication: INFECTION
     Route: 065
     Dates: start: 2020

REACTIONS (3)
  - Back pain [Unknown]
  - Gingival bleeding [Unknown]
  - Oral disorder [Unknown]

NARRATIVE: CASE EVENT DATE: 20201104
